FAERS Safety Report 12660146 (Version 1)
Quarter: 2016Q3

REPORT INFORMATION
  Report Type: Spontaneous
  Country: US (occurrence: US)
  Receive Date: 20160817
  Receipt Date: 20160817
  Transmission Date: 20161109
  Serious: Yes (Hospitalization)
  Sender: FDA-Public Use
  Company Number: US-AMGEN-USASP2016106177

PATIENT
  Age: 73 Year
  Sex: Female

DRUGS (4)
  1. IFEX [Concomitant]
     Active Substance: IFOSFAMIDE
     Dosage: UNK
  2. MESNA. [Concomitant]
     Active Substance: MESNA
     Dosage: UNK
  3. NEULASTA [Suspect]
     Active Substance: PEGFILGRASTIM
     Indication: PRODUCT USED FOR UNKNOWN INDICATION
     Dosage: UNK
     Route: 065
  4. ETOPOSIDE. [Concomitant]
     Active Substance: ETOPOSIDE
     Dosage: UNK

REACTIONS (2)
  - Agitation [Unknown]
  - Confusional state [Unknown]
